FAERS Safety Report 4284792-0 (Version None)
Quarter: 2004Q1

REPORT INFORMATION
  Report Type: 
  Country: None (occurrence: None)
  Receive Date: 20040202
  Receipt Date: 20040119
  Transmission Date: 20041129
  Serious: Yes (Congenital Anomaly)
  Sender: FDA-Public Use
  Company Number: 04P-166-0247864-00

PATIENT
  Sex: Female

DRUGS (1)
  1. MERIDIA [Suspect]

REACTIONS (3)
  - CLEFT LIP AND PALATE [None]
  - MATERNAL DRUGS AFFECTING FOETUS [None]
  - SMALL FOR DATES BABY [None]
